FAERS Safety Report 4303167-9 (Version None)
Quarter: 2004Q1

REPORT INFORMATION
  Report Type: 
  Country: None (occurrence: None)
  Receive Date: 20040224
  Receipt Date: 20040206
  Transmission Date: 20041129
  Serious: Yes (Death, Other)
  Sender: FDA-Public Use
  Company Number: PHBS2004JP01928

PATIENT
  Age: 70 Year
  Sex: Female

DRUGS (3)
  1. NEORAL [Suspect]
     Indication: INTERSTITIAL LUNG DISEASE
     Dosage: 5 MG/KG/DAY
     Route: 048
     Dates: start: 20040115, end: 20040131
  2. NEORAL [Suspect]
     Dosage: 2 MG/KG/DAY
     Route: 048
     Dates: start: 20040201, end: 20040203
  3. PREDNISOLONE [Concomitant]

REACTIONS (4)
  - DISEASE PROGRESSION [None]
  - DRUG LEVEL INCREASED [None]
  - INTERSTITIAL LUNG DISEASE [None]
  - PLATELET COUNT DECREASED [None]
